FAERS Safety Report 9960039 (Version 1)
Quarter: 2014Q1

REPORT INFORMATION
  Report Type: Report from Study
  Country: US (occurrence: US)
  Receive Date: 20140305
  Receipt Date: 20140305
  Transmission Date: 20141002
  Serious: No
  Sender: FDA-Public Use
  Company Number: US-ABBVIE-13P-163-1103121-00

PATIENT
  Age: 54 Year
  Sex: Female

DRUGS (11)
  1. HUMIRA [Suspect]
     Indication: CROHN^S DISEASE
     Dates: start: 20130214
  2. LISINOPRIL [Concomitant]
     Indication: HYPERTENSION
     Dosage: 20 MG ORALLY DAILY
     Route: 048
  3. IMODIUM [Concomitant]
     Indication: PRODUCT USED FOR UNKNOWN INDICATION
     Route: 048
  4. MERCAPTOPURINE [Concomitant]
     Indication: PRODUCT USED FOR UNKNOWN INDICATION
     Dosage: 50 MG ORALLY 1-1/2 TABS DAILY
     Route: 048
  5. LORAZEPAM [Concomitant]
     Indication: ANXIETY
  6. FEXOFENADINE [Concomitant]
     Indication: HYPERSENSITIVITY
     Route: 048
  7. ADVAIR [Concomitant]
     Indication: HYPERSENSITIVITY
     Dosage: 250/50 1 PUFF DAILY
  8. NASONEX [Concomitant]
     Indication: HYPERSENSITIVITY
     Dosage: DAILY
  9. PREMARIN [Concomitant]
     Indication: HORMONE REPLACEMENT THERAPY
  10. LEXAPRO [Concomitant]
     Indication: ANXIETY
     Dates: start: 201305
  11. LEXAPRO [Concomitant]
     Indication: DEPRESSION

REACTIONS (2)
  - Arthropod bite [Not Recovered/Not Resolved]
  - Rash [Not Recovered/Not Resolved]
